FAERS Safety Report 7669844-7 (Version None)
Quarter: 2011Q3

REPORT INFORMATION
  Report Type: 
  Country: None (occurrence: None)
  Receive Date: 20110808
  Receipt Date: 20110727
  Transmission Date: 20111222
  Serious: Yes (Hospitalization, Other)
  Sender: FDA-Public Use
  Company Number: JP-PFIZER INC-2011118917

PATIENT
  Age: 68 Year
  Sex: Male
  Weight: 56.9 kg

DRUGS (23)
  1. PLAVIX [Suspect]
     Indication: PERCUTANEOUS CORONARY INTERVENTION
  2. LANSOPRAZOLE [Suspect]
     Indication: MYOCARDIAL INFARCTION
     Dosage: 15 MG, 1X/DAY
     Route: 048
     Dates: start: 20101201, end: 20110410
  3. LASIX [Suspect]
     Indication: POLYURIA
  4. CARVEDILOL [Suspect]
     Indication: MYOCARDIAL INFARCTION
     Dosage: 1.25 MG, 2X/DAY
     Route: 048
     Dates: start: 20101201, end: 20110410
  5. CARVEDILOL [Suspect]
     Indication: ARRHYTHMIA
  6. LIPITOR [Suspect]
     Indication: MYOCARDIAL INFARCTION
     Dosage: 10 MG, 1X/DAY
     Route: 048
     Dates: start: 20101201, end: 20110410
  7. LIPITOR [Suspect]
     Indication: PERCUTANEOUS CORONARY INTERVENTION
  8. SIGMART [Suspect]
     Indication: MYOCARDIAL INFARCTION
     Dosage: 10 MG, 2X/DAY
     Route: 048
     Dates: start: 20101201, end: 20110410
  9. LANSOPRAZOLE [Suspect]
     Indication: PROPHYLAXIS AGAINST GASTROINTESTINAL ULCER
  10. LASIX [Suspect]
     Indication: MYOCARDIAL INFARCTION
     Dosage: 40 MG, 2X/DAY
     Route: 048
     Dates: start: 20101201, end: 20110410
  11. TRICHLORMETHIAZIDE [Suspect]
     Indication: POLYURIA
  12. TRICHLORMETHIAZIDE [Suspect]
     Indication: MYOCARDIAL INFARCTION
     Dosage: 2 MG, 1X/DAY
     Route: 048
     Dates: start: 20101201, end: 20110407
  13. LANSOPRAZOLE [Suspect]
     Indication: PERCUTANEOUS CORONARY INTERVENTION
  14. CARVEDILOL [Suspect]
     Indication: PERCUTANEOUS CORONARY INTERVENTION
     Dosage: 1.25 MG, UNK
     Route: 048
     Dates: start: 20110418
  15. ASPIRIN [Suspect]
     Indication: MYOCARDIAL INFARCTION
     Dosage: 100 MG, 1X/DAY
     Route: 048
     Dates: start: 20101201, end: 20110410
  16. LIPITOR [Suspect]
  17. TRICHLORMETHIAZIDE [Suspect]
     Indication: PERCUTANEOUS CORONARY INTERVENTION
  18. PLAVIX [Suspect]
     Indication: POLYURIA
  19. ASPIRIN [Suspect]
     Indication: PERCUTANEOUS CORONARY INTERVENTION
  20. LIPITOR [Suspect]
     Indication: HYPERLIPIDAEMIA
  21. PLAVIX [Suspect]
     Indication: MYOCARDIAL INFARCTION
     Dosage: 75 MG, 1X/DAY
     Route: 048
     Dates: start: 20101201, end: 20110407
  22. LASIX [Suspect]
     Indication: PERCUTANEOUS CORONARY INTERVENTION
  23. SIGMART [Suspect]
     Indication: PERCUTANEOUS CORONARY INTERVENTION

REACTIONS (1)
  - INTERSTITIAL LUNG DISEASE [None]
